FAERS Safety Report 5853837-6 (Version None)
Quarter: 2008Q3

REPORT INFORMATION
  Report Type: 
  Country: None (occurrence: None)
  Receive Date: 20080822
  Receipt Date: 20080812
  Transmission Date: 20090109
  Serious: Yes (Life-Threatening)
  Sender: FDA-Public Use
  Company Number: JP-TYCO HEALTHCARE/MALLINCKRODT-T200801323

PATIENT

DRUGS (2)
  1. OPTIRAY 300 [Suspect]
     Indication: COMPUTERISED TOMOGRAM HEAD
     Dosage: 55 ML, SINGLE
     Route: 042
     Dates: start: 20080811, end: 20080811
  2. LACTATED RINGER'S [Concomitant]
     Dosage: 500 ML, QD
     Route: 042
     Dates: start: 20080811, end: 20080811

REACTIONS (1)
  - ANAPHYLACTIC SHOCK [None]
